FAERS Safety Report 8340267-0 (Version None)
Quarter: 2012Q2

REPORT INFORMATION
  Report Type: 
  Country: None (occurrence: None)
  Receive Date: 20120507
  Receipt Date: 20120430
  Transmission Date: 20120825
  Serious: Yes (Other)
  Sender: FDA-Public Use
  Company Number: PHHY2012DE036862

PATIENT
  Sex: Male
  Weight: 111 kg

DRUGS (8)
  1. DIURETICS [Concomitant]
  2. RASILEZ [Suspect]
     Indication: HYPERTENSION
     Dosage: 300 MG/DAY
     Route: 048
     Dates: start: 20090228
  3. BETA BLOCKING AGENTS [Concomitant]
     Dates: start: 20110308
  4. ORAL ANTIDIABETICS [Concomitant]
     Indication: DIABETES MELLITUS
  5. INSULIN [Concomitant]
     Indication: DIABETES MELLITUS
  6. ORAL ANTICOAGULANTS [Concomitant]
  7. CENTRALLY ACTING ADRENERGIC SUBSTANCES [Concomitant]
     Dates: start: 20100702
  8. ANGIOTENSIN II ANTAGONISTS [Concomitant]

REACTIONS (1)
  - BLOOD GLUCOSE INCREASED [None]
